FAERS Safety Report 4748012-2 (Version None)
Quarter: 2005Q3

REPORT INFORMATION
  Report Type: 
  Country: None (occurrence: None)
  Receive Date: 20050815
  Receipt Date: 20050609
  Transmission Date: 20060218
  Serious: No
  Sender: FDA-Public Use
  Company Number: USA0506100080

PATIENT
  Age: 68 Year
  Sex: Male

DRUGS (6)
  1. CIALIS [Suspect]
     Indication: ERECTILE DYSFUNCTION
     Dosage: 20 MG/1 AS NEEDED
     Dates: start: 20041209
  2. BEXTRA [Concomitant]
  3. RELAFEN [Concomitant]
  4. MOBIC [Concomitant]
  5. ADVAIR DISKUS 100/50 [Concomitant]
  6. ALBUTEROL [Concomitant]

REACTIONS (2)
  - ARTHRITIS [None]
  - SEMEN DISCOLOURATION [None]
